FAERS Safety Report 10055274 (Version 1)
Quarter: 2014Q2

REPORT INFORMATION
  Report Type: Spontaneous
  Country: US (occurrence: US)
  Receive Date: 20140403
  Receipt Date: 20140403
  Transmission Date: 20141212
  Serious: Yes (Hospitalization, Other)
  Sender: FDA-Public Use
  Company Number: US-AMGEN INC.-USASP2014022677

PATIENT
  Age: 50 Year
  Sex: Female

DRUGS (1)
  1. EPOGEN [Suspect]
     Indication: RENAL FAILURE CHRONIC
     Dosage: 39000 UNIT, QWK
     Route: 065

REACTIONS (5)
  - Pain in extremity [Unknown]
  - Local swelling [Unknown]
  - Oedema peripheral [Unknown]
  - Haemoglobin decreased [Not Recovered/Not Resolved]
  - Aplasia pure red cell [Unknown]
